FAERS Safety Report 4435006-X (Version None)
Quarter: 2004Q3

REPORT INFORMATION
  Report Type: 
  Country: None (occurrence: None)
  Receive Date: 20040726
  Receipt Date: 20040416
  Transmission Date: 20050211
  Serious: No
  Sender: FDA-Public Use
  Company Number: USA040260395

PATIENT
  Age: 76 Year
  Sex: Female
  Weight: 45 kg

DRUGS (4)
  1. FORTEO [Suspect]
     Indication: OSTEOPOROSIS
     Dosage: 20 UG DAY
     Dates: start: 20031201
  2. HUMULIN R [Suspect]
     Indication: DIABETES MELLITUS
     Dosage: 9 U DAY
     Dates: start: 19840101
  3. DILANTIN [Concomitant]
  4. FOSAMAX [Concomitant]

REACTIONS (3)
  - BLOOD GLUCOSE INCREASED [None]
  - BURNING SENSATION [None]
  - GLYCOSYLATED HAEMOGLOBIN INCREASED [None]
